FAERS Safety Report 7200564-9 (Version None)
Quarter: 2010Q4

REPORT INFORMATION
  Report Type: 
  Country: None (occurrence: None)
  Receive Date: 20101228
  Receipt Date: 20101214
  Transmission Date: 20110411
  Serious: Yes (Other)
  Sender: FDA-Public Use
  Company Number: US-MYLANLABS-2010S1022847

PATIENT
  Age: 39 Year
  Sex: Male
  Weight: 65 kg

DRUGS (3)
  1. AMIODARONE [Suspect]
     Indication: VENTRICULAR TACHYCARDIA
     Dosage: DOSE AT TIME OF HOSPITALISATION
     Route: 065
  2. PROCAINAMIDE [Suspect]
     Indication: VENTRICULAR TACHYCARDIA
     Dosage: DOSE AT TIME OF HOSPITALISATION
     Route: 065
  3. SOTALOL HCL [Suspect]
     Indication: VENTRICULAR TACHYCARDIA
     Dosage: DOSE AT TIME OF HOSPITALISATION
     Route: 065

REACTIONS (2)
  - GRAFT DYSFUNCTION [None]
  - SKIN DISCOLOURATION [None]
